FAERS Safety Report 7335506-9 (Version None)
Quarter: 2011Q1

REPORT INFORMATION
  Report Type: 
  Country: None (occurrence: None)
  Receive Date: 20110301
  Receipt Date: 20110301
  Transmission Date: 20110831
  Serious: Yes (Life-Threatening, Hospitalization, Other)
  Sender: FDA-Public Use
  Company Number: None

PATIENT
  Age: 84 Year
  Sex: Female
  Weight: 58.7 kg

DRUGS (2)
  1. LOVENOX [Suspect]
     Indication: ANTICOAGULANT THERAPY
     Dosage: 40 MG DAILY SUBCUTANEOUS
     Route: 058
     Dates: start: 20101026, end: 20101028
  2. FENTANYL/BUPIVACAINE EPIDURAL [Concomitant]

REACTIONS (1)
  - EXTRADURAL HAEMATOMA [None]
